FAERS Safety Report 5311634-4 (Version None)
Quarter: 2007Q2

REPORT INFORMATION
  Report Type: 
  Country: None (occurrence: None)
  Receive Date: 20070426
  Receipt Date: 20070426
  Transmission Date: 20071010
  Serious: Yes (Other)
  Sender: FDA-Public Use
  Company Number: None

PATIENT
  Sex: Female
  Weight: 72.4 kg

DRUGS (4)
  1. CYCLOPHOSPHAMIDE [Suspect]
     Dosage: 3268 MG
     Dates: end: 20061228
  2. CYTARABINE [Suspect]
     Dosage: 2075 MG
     Dates: end: 20061224
  3. MERCAPTOPURINE [Suspect]
     Dosage: 1680 MG
     Dates: end: 20061227
  4. METHOTREXATE [Suspect]
     Dosage: 50 MG
     Dates: end: 20061228

REACTIONS (3)
  - CATHETER RELATED COMPLICATION [None]
  - CATHETER THROMBOSIS [None]
  - DEEP VEIN THROMBOSIS [None]
